FAERS Safety Report 12635254 (Version 1)
Quarter: 2016Q3

REPORT INFORMATION
  Report Type: Report from Study
  Country: BR (occurrence: BR)
  Receive Date: 20160809
  Receipt Date: 20160809
  Transmission Date: 20161109
  Serious: Yes (Death)
  Sender: FDA-Public Use
  Company Number: PHHY2016BR108986

PATIENT
  Sex: Male
  Weight: 35 kg

DRUGS (1)
  1. EXELON PATCH [Suspect]
     Active Substance: RIVASTIGMINE
     Indication: MEMORY IMPAIRMENT
     Dosage: (5 CM2 PATCH) 4.6 MG, QD
     Route: 062
     Dates: end: 20160520

REACTIONS (1)
  - Death [Fatal]
